FAERS Safety Report 10189001 (Version 3)
Quarter: 2014Q3

REPORT INFORMATION
  Report Type: Spontaneous
  Country: JP (occurrence: JP)
  Receive Date: 20140522
  Receipt Date: 20140724
  Transmission Date: 20150326
  Serious: Yes (Other)
  Sender: FDA-Public Use
  Company Number: PHHY2014JP047772

PATIENT
  Sex: Female

DRUGS (13)
  1. WARFARIN [Concomitant]
     Active Substance: WARFARIN
     Dosage: 2 MG, UNK
     Route: 048
     Dates: start: 201312
  2. NEORAL [Suspect]
     Active Substance: CYCLOSPORINE
     Indication: NEPHROTIC SYNDROME
     Dosage: 75 MG, DAILY
     Route: 048
     Dates: start: 201401
  3. NEORAL [Suspect]
     Active Substance: CYCLOSPORINE
     Dosage: 50 MG, DAILY
     Route: 048
  4. PREDNISOLONE. [Suspect]
     Active Substance: PREDNISOLONE
     Dosage: UNK
  5. TRAZENTA [Concomitant]
     Active Substance: LINAGLIPTIN
     Dosage: 5 MG, UNK
     Route: 048
     Dates: start: 201312
  6. PREDNISOLONE. [Suspect]
     Active Substance: PREDNISOLONE
     Dosage: 50 MG, DAILY
     Route: 048
     Dates: start: 201312
  7. SIGMART [Suspect]
     Active Substance: NICORANDIL
     Dosage: 15 MG, DAILY
     Route: 048
     Dates: start: 201401
  8. METHYCOBAL [Suspect]
     Active Substance: METHYLCOBALAMIN
     Dosage: 500 MG, DAILY
     Route: 048
     Dates: start: 201312
  9. BAKTAR [Suspect]
     Active Substance: SULFAMETHOXAZOLE\TRIMETHOPRIM
     Dosage: 1 DF, DAILY
     Route: 048
     Dates: start: 201311
  10. THYRADIN [Concomitant]
     Active Substance: LEVOTHYROXINE
     Dosage: 25 MG, UNK
     Route: 048
     Dates: start: 201401
  11. BONALON [Concomitant]
     Active Substance: ALENDRONATE SODIUM
     Dosage: UNK UKN, UNK
     Dates: start: 201312
  12. TAKEPRON [Concomitant]
     Active Substance: LANSOPRAZOLE
     Dosage: 15 MG, UNK
     Route: 048
     Dates: start: 201311
  13. BIOFERMIN [Concomitant]
     Active Substance: BACILLUS SUBTILIS\LACTOBACILLUS ACIDOPHILUS\STREPTOCOCCUS FAECAIS
     Dosage: 1 G, UNK
     Route: 048
     Dates: start: 201401

REACTIONS (6)
  - Gamma-glutamyltransferase increased [Recovered/Resolved]
  - Blood cholinesterase decreased [Recovered/Resolved]
  - Blood creatinine increased [Not Recovered/Not Resolved]
  - Aspartate aminotransferase increased [Not Recovered/Not Resolved]
  - Haemolytic anaemia [Recovered/Resolved]
  - Drug ineffective [Unknown]

NARRATIVE: CASE EVENT DATE: 201401
